FAERS Safety Report 5503447-5 (Version None)
Quarter: 2007Q4

REPORT INFORMATION
  Report Type: 
  Country: None (occurrence: None)
  Receive Date: 20071031
  Receipt Date: 20071022
  Transmission Date: 20080405
  Serious: Yes (Hospitalization)
  Sender: FDA-Public Use
  Company Number: FI-PFIZER INC-2007089012

PATIENT
  Sex: Female

DRUGS (5)
  1. LIPITOR [Suspect]
  2. METFORMIN HCL [Concomitant]
     Route: 048
  3. RENITEC [Concomitant]
     Route: 048
  4. PRIMASPAN [Concomitant]
     Route: 048
  5. THYROXIN [Concomitant]
     Route: 048

REACTIONS (5)
  - BLOOD PRESSURE SYSTOLIC INCREASED [None]
  - BLOOD SODIUM DECREASED [None]
  - BLOOD THYROID STIMULATING HORMONE INCREASED [None]
  - OSTEOARTHRITIS [None]
  - POLYMYOSITIS [None]
